FAERS Safety Report 9605173 (Version 1)
Quarter: 2013Q4

REPORT INFORMATION
  Report Type: Spontaneous
  Country: US (occurrence: US)
  Receive Date: 20131008
  Receipt Date: 20131008
  Transmission Date: 20140711
  Serious: Yes (Other)
  Sender: FDA-Public Use
  Company Number: US-PFIZER INC-2013285908

PATIENT
  Sex: Male

DRUGS (3)
  1. NORVASC [Suspect]
     Dosage: UNK
  2. LYRICA [Suspect]
     Dosage: UNK
  3. ALDACTONE [Suspect]
     Dosage: UNK

REACTIONS (1)
  - Arthropathy [Unknown]
